FAERS Safety Report 9849258 (Version 1)
Quarter: 2014Q1

REPORT INFORMATION
  Report Type: Spontaneous
  Country: US (occurrence: US)
  Receive Date: 20140128
  Receipt Date: 20140128
  Transmission Date: 20141002
  Serious: No
  Sender: FDA-Public Use
  Company Number: US-ABBVIE-13P-163-1165784-00

PATIENT
  Age: 62 Year
  Sex: Male
  Weight: 97.61 kg

DRUGS (5)
  1. LUPRON DEPOT [Suspect]
     Indication: PROSTATE CANCER
     Route: 030
     Dates: start: 201303
  2. LUPRON DEPOT [Suspect]
     Route: 030
     Dates: start: 201308
  3. LUPRON DEPOT [Suspect]
     Indication: PROSTATE CANCER
     Route: 030
     Dates: start: 201304
  4. LUPRON DEPOT [Suspect]
     Route: 030
     Dates: start: 20130909
  5. DITROPAN [Concomitant]
     Indication: URETERAL SPASM

REACTIONS (2)
  - Arthralgia [Not Recovered/Not Resolved]
  - Myalgia [Not Recovered/Not Resolved]
